FAERS Safety Report 20634903 (Version 1)
Quarter: 2022Q1

REPORT INFORMATION
  Report Type: Spontaneous
  Country: US (occurrence: US)
  Receive Date: 20220325
  Receipt Date: 20220325
  Transmission Date: 20220423
  Serious: No
  Sender: FDA-Public Use
  Company Number: US-NOVARTISTESTPH-NVSC2022US062548

PATIENT
  Age: 64 Year
  Sex: Female

DRUGS (3)
  1. OCTREOTIDE [Suspect]
     Active Substance: OCTREOTIDE
     Indication: Ovarian cancer
     Dosage: 600 MG, BID
     Route: 065
     Dates: start: 20220204, end: 20220206
  2. OCTREOTIDE [Suspect]
     Active Substance: OCTREOTIDE
     Indication: Ileostomy
     Dosage: INJECTION 3 TIMES DAILY,
     Route: 065
     Dates: start: 202202
  3. OCTREOTIDE [Suspect]
     Active Substance: OCTREOTIDE

REACTIONS (5)
  - Fatigue [Unknown]
  - Nausea [Unknown]
  - Product use in unapproved indication [Unknown]
  - Incorrect dose administered [Unknown]
  - Procedural pain [Unknown]

NARRATIVE: CASE EVENT DATE: 20220207
